FAERS Safety Report 23444937 (Version 2)
Quarter: 2024Q1

REPORT INFORMATION
  Report Type: Spontaneous
  Country: IL (occurrence: IL)
  Receive Date: 20240125
  Receipt Date: 20240222
  Transmission Date: 20240409
  Serious: Yes (Death, Other)
  Sender: FDA-Public Use
  Company Number: IL-TAKEDA-2024TUS007246

PATIENT
  Sex: Male

DRUGS (4)
  1. GATTEX [Suspect]
     Active Substance: TEDUGLUTIDE\WATER
     Indication: Short-bowel syndrome
     Dosage: UNK
     Route: 065
     Dates: start: 202309
  2. GATTEX [Suspect]
     Active Substance: TEDUGLUTIDE\WATER
     Indication: Short-bowel syndrome
     Dosage: UNK
     Route: 065
     Dates: start: 202309
  3. GATTEX [Suspect]
     Active Substance: TEDUGLUTIDE\WATER
     Indication: Short-bowel syndrome
     Dosage: UNK
     Route: 065
     Dates: start: 202309
  4. GATTEX [Suspect]
     Active Substance: TEDUGLUTIDE\WATER
     Indication: Short-bowel syndrome
     Dosage: UNK
     Route: 065
     Dates: start: 202309

REACTIONS (2)
  - Sepsis [Fatal]
  - Circulatory collapse [Fatal]

NARRATIVE: CASE EVENT DATE: 20240113
